FAERS Safety Report 4330201-2 (Version None)
Quarter: 2004Q1

REPORT INFORMATION
  Report Type: 
  Country: None (occurrence: None)
  Receive Date: 20040329
  Receipt Date: 20040315
  Transmission Date: 20041129
  Serious: Yes (Hospitalization)
  Sender: FDA-Public Use
  Company Number: 04P-013-0253636-00

PATIENT
  Age: 56 Year
  Sex: Female
  Weight: 82 kg

DRUGS (1)
  1. TRICOR [Suspect]
     Indication: HYPERCHOLESTEROLAEMIA
     Dosage: 267 MG, 1 IN 1 D, ORAL
     Route: 048
     Dates: start: 20030430, end: 20030523

REACTIONS (3)
  - BREAST CANCER [None]
  - CONDITION AGGRAVATED [None]
  - LYMPHANGITIS [None]
